FAERS Safety Report 4316325-4 (Version None)
Quarter: 2004Q1

REPORT INFORMATION
  Report Type: 
  Country: None (occurrence: None)
  Receive Date: 20040312
  Receipt Date: 20040303
  Transmission Date: 20041129
  Serious: Yes (Hospitalization)
  Sender: FDA-Public Use
  Company Number: JP-BRISTOL-MYERS SQUIBB COMPANY-12527776

PATIENT
  Age: 84 Year
  Sex: Female

DRUGS (3)
  1. ENDOXAN [Suspect]
     Indication: LYMPHOMA
     Dates: start: 20031218, end: 20031218
  2. ONCOVIN [Suspect]
     Indication: LYMPHOMA
     Dates: start: 20031218, end: 20031218
  3. ADRIAMYCIN PFS [Suspect]
     Indication: LYMPHOMA
     Dates: start: 20031218, end: 20031218

REACTIONS (3)
  - ILEAL PERFORATION [None]
  - MALAISE [None]
  - NAUSEA [None]
